FAERS Safety Report 11945870 (Version 1)
Quarter: 2016Q1

REPORT INFORMATION
  Report Type: Report from Study
  Country: PR (occurrence: PR)
  Receive Date: 20160125
  Receipt Date: 20160125
  Transmission Date: 20160526
  Serious: No
  Sender: FDA-Public Use
  Company Number: PR-ABBVIE-15K-131-1355950-00

PATIENT
  Age: 60 Year
  Sex: Male
  Weight: 74.91 kg

DRUGS (2)
  1. AMLODIPINE W/VALSARTAN [Concomitant]
     Active Substance: AMLODIPINE\VALSARTAN
     Indication: HYPERTENSION
     Dosage: 5MG/160MG
     Route: 048
     Dates: start: 20150226
  2. HUMIRA [Suspect]
     Active Substance: ADALIMUMAB
     Indication: PSORIATIC ARTHROPATHY
     Route: 058
     Dates: start: 201412, end: 20150115

REACTIONS (10)
  - Productive cough [Recovering/Resolving]
  - Psoriasis [Not Recovered/Not Resolved]
  - Drug ineffective [Unknown]
  - Bronchitis [Recovering/Resolving]
  - Cough [Recovering/Resolving]
  - Hypertension [Unknown]
  - Respiratory tract infection [Unknown]
  - Malaise [Not Recovered/Not Resolved]
  - Adverse drug reaction [Unknown]
  - Psoriasis [Unknown]

NARRATIVE: CASE EVENT DATE: 201501
